FAERS Safety Report 14474524 (Version 1)
Quarter: 2018Q1

REPORT INFORMATION
  Report Type: Report from Study
  Country: None (occurrence: US)
  Receive Date: 20180201
  Receipt Date: 20180201
  Transmission Date: 20180509
  Serious: Yes (Hospitalization)
  Sender: FDA-Public Use
  Company Number: US-ABBVIE-18P-163-2242312-00

PATIENT
  Age: 1 Year
  Sex: Male
  Weight: 10.7 kg

DRUGS (2)
  1. OXYGEN. [Concomitant]
     Active Substance: OXYGEN
     Indication: PRODUCT USED FOR UNKNOWN INDICATION
     Route: 055
  2. SYNAGIS [Suspect]
     Active Substance: PALIVIZUMAB
     Indication: CHRONIC OBSTRUCTIVE PULMONARY DISEASE
     Dosage: 160.5MG ONCE/SINGLE ADMINISTRATION
     Route: 030
     Dates: start: 20180111, end: 20180111

REACTIONS (4)
  - Off label use [Unknown]
  - Salivary hypersecretion [Unknown]
  - Oxygen consumption increased [Unknown]
  - Product use in unapproved indication [Unknown]

NARRATIVE: CASE EVENT DATE: 20180111
